APPROVED DRUG PRODUCT: JYNARQUE
Active Ingredient: TOLVAPTAN
Strength: 30MG
Dosage Form/Route: TABLET;ORAL
Application: N204441 | Product #002 | TE Code: AB2
Applicant: OTSUKA PHARMACEUTICAL CO LTD
Approved: Apr 23, 2018 | RLD: Yes | RS: No | Type: RX

PATENTS:
Patent 8501730 | Expires: Sep 1, 2026
Patent 10905694 | Expires: Apr 7, 2030